FAERS Safety Report 5798130-5 (Version None)
Quarter: 2008Q3

REPORT INFORMATION
  Report Type: 
  Country: None (occurrence: None)
  Receive Date: 20080702
  Receipt Date: 20080521
  Transmission Date: 20090109
  Serious: Yes (Hospitalization)
  Sender: FDA-Public Use
  Company Number: KR-JNJFOC-20070203921

PATIENT
  Sex: Female
  Weight: 49.8 kg

DRUGS (12)
  1. INFLIXIMAB, RECOMBINANT [Suspect]
     Indication: RHEUMATOID ARTHRITIS
     Route: 042
  2. METHOTREXATE [Suspect]
     Indication: RHEUMATOID ARTHRITIS
     Route: 048
  3. ADCAL [Concomitant]
     Dosage: DOSE=1 TABLET
     Route: 048
  4. ADCAL [Concomitant]
     Indication: OSTEOPOROSIS
     Route: 048
  5. METHYLON [Concomitant]
     Route: 048
  6. METHYLON [Concomitant]
     Indication: RHEUMATOID ARTHRITIS
     Route: 048
  7. MOBIC [Concomitant]
     Indication: RHEUMATOID ARTHRITIS
     Route: 048
  8. FOLIN [Concomitant]
     Route: 048
  9. FOLIN [Concomitant]
     Indication: RHEUMATOID ARTHRITIS
     Route: 048
  10. ACTONEL [Concomitant]
     Route: 048
  11. ACTONEL [Concomitant]
     Indication: OSTEOPOROSIS
     Route: 048
  12. TYLENOL-ER [Concomitant]
     Indication: RHEUMATOID ARTHRITIS
     Route: 048

REACTIONS (1)
  - PNEUMONIA CRYPTOCOCCAL [None]
